FAERS Safety Report 15173077 (Version 3)
Quarter: 2019Q2

REPORT INFORMATION
  Report Type: Spontaneous
  Country: CA (occurrence: CA)
  Receive Date: 20180720
  Receipt Date: 20190530
  Transmission Date: 20190711
  Serious: Yes (Death)
  Sender: FDA-Public Use
  Company Number: CA-PFIZER INC-2018086639

PATIENT
  Age: 77 Year
  Sex: Female
  Weight: 55 kg

DRUGS (12)
  1. RAMIPRIL. [Concomitant]
     Active Substance: RAMIPRIL
     Dosage: 2.5 MG, 1X/DAY
  2. CALCIUM PLUS D3 + MINERALS [Concomitant]
     Dosage: 600 MG, 1X/DAY
  3. DEXAMETHASONE. [Concomitant]
     Active Substance: DEXAMETHASONE
     Dosage: 4 MG, 1X/DAY (MORNING)
  4. APO-METOPROLOL [Concomitant]
     Active Substance: METOPROLOL
     Dosage: 50 MG, 2X/DAY(AT BREAKFAST AND DINNER)
  5. IBRANCE [Suspect]
     Active Substance: PALBOCICLIB
     Dosage: 125 MG, CYCLIC (QD 21 DAYS ON, 7 DAYS OFF)
     Route: 048
     Dates: start: 20180518
  6. HYDROMORPHONE [Concomitant]
     Active Substance: HYDROMORPHONE
     Dosage: 1 MG, EVERY 2 HRS AS NEEDED
  7. LORAZEPAM. [Concomitant]
     Active Substance: LORAZEPAM
     Indication: PAIN
     Dosage: 0.5 MG, 4X/DAYAS NEEDED
  8. FLUCONAZOLE. [Concomitant]
     Active Substance: FLUCONAZOLE
     Dosage: 100 MG, 1X/DAY
  9. TRAZODONE [Concomitant]
     Active Substance: TRAZODONE HYDROCHLORIDE
     Dosage: 0.5 DF(50MG), DAILY EVERY NIGHT
  10. AMIODARONE [Concomitant]
     Active Substance: AMIODARONE
     Dosage: 200 MG, 1X/DAY
  11. VITAMIN D [Concomitant]
     Active Substance: VITAMIN D NOS
     Dosage: 1000 IU, 1X/DAY
  12. SANDOZ ANASTROZOLE [Concomitant]
     Dosage: 1 MG, 1X/DAY (BREAKFAST)

REACTIONS (1)
  - Neoplasm progression [Fatal]

NARRATIVE: CASE EVENT DATE: 20180709
